FAERS Safety Report 10481967 (Version 5)
Quarter: 2014Q4

REPORT INFORMATION
  Report Type: Spontaneous
  Country: IL (occurrence: IL)
  Receive Date: 20140929
  Receipt Date: 20141219
  Transmission Date: 20150528
  Serious: Yes (Hospitalization)
  Sender: FDA-Public Use
  Company Number: IL-VERTEX PHARMACEUTICALS-2014-003251

PATIENT
  Age: 52 Year
  Sex: Female

DRUGS (5)
  1. RIBAVIRIN. [Suspect]
     Active Substance: RIBAVIRIN
     Dosage: 4 DF, QD
     Route: 065
  2. INCIVO [Suspect]
     Active Substance: TELAPREVIR
     Indication: HEPATITIS C
     Dosage: UNK
     Route: 048
     Dates: start: 20140618, end: 20140924
  3. RIBAVIRIN. [Suspect]
     Active Substance: RIBAVIRIN
     Dosage: 1 DF, UNK
     Route: 065
  4. RIBAVIRIN. [Suspect]
     Active Substance: RIBAVIRIN
     Indication: HEPATITIS C
     Dosage: 6 DF, QD
     Route: 065
  5. RIBAVIRIN. [Suspect]
     Active Substance: RIBAVIRIN
     Indication: WHITE BLOOD CELL COUNT
     Dosage: UNK
     Route: 065

REACTIONS (31)
  - Nervousness [Unknown]
  - Chills [Not Recovered/Not Resolved]
  - Rash [Unknown]
  - Confusional state [Not Recovered/Not Resolved]
  - Hepatic pain [Unknown]
  - Thirst [Unknown]
  - Malaise [Unknown]
  - Pruritus [Not Recovered/Not Resolved]
  - Swelling [Unknown]
  - Off label use [Unknown]
  - Asthenia [Recovering/Resolving]
  - Anaemia [Unknown]
  - Disturbance in attention [Unknown]
  - Thyroid function test abnormal [Unknown]
  - Treatment noncompliance [Unknown]
  - Head discomfort [Unknown]
  - Weight increased [Unknown]
  - Anorectal discomfort [Unknown]
  - Pyrexia [Recovered/Resolved]
  - Amnesia [Unknown]
  - Dizziness [Not Recovered/Not Resolved]
  - Hypotension [Unknown]
  - Micturition urgency [Unknown]
  - Pain [Unknown]
  - Leukopenia [Recovered/Resolved]
  - Pollakiuria [Unknown]
  - Dry mouth [Unknown]
  - Vomiting [Not Recovered/Not Resolved]
  - Phobia [Unknown]
  - Decreased appetite [Unknown]
  - Nausea [Not Recovered/Not Resolved]
